FAERS Safety Report 7508170-3 (Version None)
Quarter: 2011Q2

REPORT INFORMATION
  Report Type: 
  Country: None (occurrence: None)
  Receive Date: 20110527
  Receipt Date: 20100802
  Transmission Date: 20111010
  Serious: No
  Sender: FDA-Public Use
  Company Number: US-MYLANLABS-2010S1014158

PATIENT
  Sex: Female

DRUGS (2)
  1. BUPROPION HYDROCHLORIDE [Suspect]
     Indication: DEPRESSION
     Dosage: 1/2 TABLET QD
     Route: 048
     Dates: start: 20100729, end: 20100802
  2. BUPROPION HYDROCHLORIDE [Suspect]
     Indication: ANXIETY
     Dosage: 1/2 TABLET QD
     Route: 048
     Dates: start: 20100729, end: 20100802

REACTIONS (2)
  - PHOTOPHOBIA [None]
  - MUSCLE RIGIDITY [None]
